APPROVED DRUG PRODUCT: LEVOMILNACIPRAN HYDROCHLORIDE
Active Ingredient: LEVOMILNACIPRAN HYDROCHLORIDE
Strength: EQ 40MG BASE
Dosage Form/Route: CAPSULE, EXTENDED RELEASE;ORAL
Application: A210790 | Product #002
Applicant: AMNEAL PHARMACEUTICALS CO GMBH
Approved: Feb 4, 2019 | RLD: No | RS: No | Type: DISCN